APPROVED DRUG PRODUCT: PERINDOPRIL ERBUMINE
Active Ingredient: PERINDOPRIL ERBUMINE
Strength: 4MG
Dosage Form/Route: TABLET;ORAL
Application: A090463 | Product #002
Applicant: APOTEX INC
Approved: Aug 30, 2010 | RLD: No | RS: No | Type: DISCN